FAERS Safety Report 7359223-4 (Version None)
Quarter: 2011Q1

REPORT INFORMATION
  Report Type: 
  Country: None (occurrence: None)
  Receive Date: 20110317
  Receipt Date: 20110303
  Transmission Date: 20110831
  Serious: Yes (Other)
  Sender: FDA-Public Use
  Company Number: PHHY2011US17963

PATIENT
  Age: 39 Year
  Sex: Female

DRUGS (12)
  1. MOVIK [Concomitant]
  2. WELLBUTRIN [Concomitant]
  3. NEURONTIN [Concomitant]
  4. GLEEVEC [Suspect]
     Dosage: 300 MG, UNK
  5. PRILOSEC [Concomitant]
  6. SKELAXIN [Concomitant]
  7. LORTAB [Concomitant]
     Indication: PAIN
  8. AMBIEN [Concomitant]
  9. PROVIGIL [Concomitant]
  10. CELEXA [Concomitant]
  11. GLEEVEC [Suspect]
     Dosage: 400 MG, UNK
  12. ZOFRAN [Concomitant]
     Indication: NAUSEA

REACTIONS (3)
  - GALLBLADDER DISORDER [None]
  - HYPOPHAGIA [None]
  - ABDOMINAL PAIN UPPER [None]
